FAERS Safety Report 6144750-8 (Version None)
Quarter: 2009Q2

REPORT INFORMATION
  Report Type: 
  Country: None (occurrence: None)
  Receive Date: 20090406
  Receipt Date: 20090325
  Transmission Date: 20091009
  Serious: Yes (Death)
  Sender: FDA-Public Use
  Company Number: JP-PFIZER INC-2009189677

PATIENT

DRUGS (2)
  1. CAMPTOSAR [Suspect]
     Indication: GASTRIC CANCER
     Dosage: 200 MG/BODY (155 MG/M2)
     Route: 041
     Dates: start: 20090210, end: 20090210
  2. CAMPTOSAR [Suspect]
     Dosage: 150 MG/BODY (116.3 MG/M2)
     Route: 041
     Dates: start: 20090305, end: 20090305

REACTIONS (3)
  - INFECTION [None]
  - NEUTROPENIA [None]
  - SEPSIS [None]
